FAERS Safety Report 5600792-X (Version None)
Quarter: 2008Q1

REPORT INFORMATION
  Report Type: 
  Country: None (occurrence: None)
  Receive Date: 20080123
  Receipt Date: 20080115
  Transmission Date: 20080703
  Serious: Yes (Other)
  Sender: FDA-Public Use
  Company Number: US-GENENTECH-248896

PATIENT

DRUGS (2)
  1. AVASTIN [Suspect]
     Indication: MACULAR DEGENERATION
     Dosage: UNK, Q2M
     Route: 031
     Dates: start: 20070718
  2. COSOPT [Concomitant]
     Indication: GLAUCOMA
     Dosage: UNK, Q12H
     Route: 061

REACTIONS (2)
  - UVEITIS [None]
  - VISION BLURRED [None]
